FAERS Safety Report 25037850 (Version 1)
Quarter: 2025Q1

REPORT INFORMATION
  Report Type: Spontaneous
  Country: US (occurrence: US)
  Receive Date: 20250304
  Receipt Date: 20250304
  Transmission Date: 20250408
  Serious: Yes (Hospitalization)
  Sender: VIIV
  Company Number: US-VIIV HEALTHCARE-US2025024757

PATIENT

DRUGS (2)
  1. DOVATO [Suspect]
     Active Substance: DOLUTEGRAVIR SODIUM\LAMIVUDINE
     Indication: HIV infection
     Dates: start: 201801
  2. ELIQUIS [Concomitant]
     Active Substance: APIXABAN
     Indication: Atrial fibrillation
     Dates: start: 2018

REACTIONS (3)
  - Hypertension [Recovering/Resolving]
  - Hypercholesterolaemia [Unknown]
  - Product dose omission issue [Unknown]
